FAERS Safety Report 8541672-X (Version None)
Quarter: 2012Q3

REPORT INFORMATION
  Report Type: 
  Country: None (occurrence: None)
  Receive Date: 20120726
  Receipt Date: 20120717
  Transmission Date: 20120928
  Serious: Yes (Hospitalization)
  Sender: FDA-Public Use
  Company Number: DE-GLAXOSMITHKLINE-D0076244A

PATIENT
  Sex: Female
  Weight: 80 kg

DRUGS (4)
  1. LAMOTRIGINE [Suspect]
     Dosage: 525MG PER DAY
     Route: 048
     Dates: start: 20120704, end: 20120704
  2. DIAZEPAM [Suspect]
     Dosage: 20MG PER DAY
     Route: 048
     Dates: start: 20120704, end: 20120704
  3. SEROQUEL [Suspect]
     Dosage: 350MG PER DAY
     Route: 048
     Dates: start: 20120704, end: 20120704
  4. PAROXETINE [Suspect]
     Dosage: 210MG PER DAY
     Route: 048
     Dates: start: 20120704, end: 20120704

REACTIONS (3)
  - SUICIDE ATTEMPT [None]
  - SOMNOLENCE [None]
  - INTENTIONAL OVERDOSE [None]
